FAERS Safety Report 19421920 (Version 1)
Quarter: 2021Q2

REPORT INFORMATION
  Report Type: Spontaneous
  Country: US (occurrence: US)
  Receive Date: 20210615
  Receipt Date: 20210615
  Transmission Date: 20210717
  Serious: No
  Sender: FDA-Public Use
  Company Number: None

PATIENT
  Age: 74 Year
  Sex: Male

DRUGS (1)
  1. HALOPERIDOL (HALOPERIDOL LACTATE 5MG/5ML LIQUID,10ML) [Suspect]
     Active Substance: HALOPERIDOL LACTATE
     Indication: BIPOLAR I DISORDER
     Dates: start: 20210506, end: 20210527

REACTIONS (4)
  - Pyrexia [None]
  - Neuroleptic malignant syndrome [None]
  - Blood urea increased [None]
  - Blood creatinine increased [None]

NARRATIVE: CASE EVENT DATE: 20210527
